FAERS Safety Report 16053936 (Version 1)
Quarter: 2019Q1

REPORT INFORMATION
  Report Type: Spontaneous
  Country: US (occurrence: US)
  Receive Date: 20190308
  Receipt Date: 20190308
  Transmission Date: 20190418
  Serious: Yes (Hospitalization)
  Sender: FDA-Public Use
  Company Number: US-VERTEX PHARMACEUTICALS-2019-001918

PATIENT
  Age: 12 Year
  Sex: Male

DRUGS (19)
  1. AZITHROMYCIN ANHYDROUS. [Concomitant]
     Active Substance: AZITHROMYCIN ANHYDROUS
     Dosage: 500 MG
  2. SODIUM CHLORIDE. [Concomitant]
     Active Substance: SODIUM CHLORIDE
     Dosage: 7% VIAL
  3. CIPROFLOXACIN HYDROCHLORIDE. [Concomitant]
     Active Substance: CIPROFLOXACIN HYDROCHLORIDE
     Dosage: 750 MG
  4. STERILE WATER [Concomitant]
     Active Substance: WATER
  5. VORICONAZOLE. [Concomitant]
     Active Substance: VORICONAZOLE
     Dosage: 200 MG
  6. VITAMIN D3 [Concomitant]
     Active Substance: CHOLECALCIFEROL
     Dosage: 1000 UNIT
  7. PHYTONADIONE. [Concomitant]
     Active Substance: PHYTONADIONE
     Dosage: 5 MG
  8. MEPHYTON [Concomitant]
     Active Substance: PHYTONADIONE
  9. VITAMIN E                          /00110501/ [Concomitant]
     Active Substance: TOCOPHEROL
     Dosage: 400 UNIT CAPSULE
  10. MONTELUKAST SODIUM. [Concomitant]
     Active Substance: MONTELUKAST SODIUM
     Dosage: 5 MG
  11. COLISTIMETHATE                     /00013204/ [Concomitant]
     Active Substance: COLISTIMETHATE SODIUM
     Dosage: 150 MG VIAL
  12. VENTOLIN HFA [Concomitant]
     Active Substance: ALBUTEROL SULFATE
  13. TOBRAMYCIN. [Concomitant]
     Active Substance: TOBRAMYCIN
     Dosage: 300 MG/5 ML
  14. PULMOZYME [Concomitant]
     Active Substance: DORNASE ALFA
     Dosage: 2.5 MG/ 2.5 ML
     Route: 055
  15. CREON [Concomitant]
     Active Substance: PANCRELIPASE AMYLASE\PANCRELIPASE LIPASE\PANCRELIPASE PROTEASE
     Dosage: 24,000 UNIT CAPSULE
  16. KALYDECO [Suspect]
     Active Substance: IVACAFTOR
     Indication: CYSTIC FIBROSIS
     Dosage: 150 MG, BID
     Route: 048
     Dates: start: 20161123
  17. RANITIDINE. [Concomitant]
     Active Substance: RANITIDINE
     Dosage: 150 MG
  18. ALVESCO [Concomitant]
     Active Substance: CICLESONIDE
  19. DULERA [Concomitant]
     Active Substance: FORMOTEROL FUMARATE DIHYDRATE\MOMETASONE FUROATE
     Dosage: 200 MCG/5 MCG

REACTIONS (1)
  - Surgery [Unknown]

NARRATIVE: CASE EVENT DATE: 20190228
